FAERS Safety Report 16240202 (Version 1)
Quarter: 2019Q2

REPORT INFORMATION
  Report Type: Spontaneous
  Country: PT (occurrence: PT)
  Receive Date: 20190425
  Receipt Date: 20190425
  Transmission Date: 20190711
  Serious: Yes (Other)
  Sender: FDA-Public Use
  Company Number: PT-FRESENIUS KABI-FK201904788

PATIENT
  Age: 58 Year
  Sex: Male

DRUGS (4)
  1. CALCIUM FOLINATE [Concomitant]
     Active Substance: LEUCOVORIN CALCIUM
     Indication: PRODUCT USED FOR UNKNOWN INDICATION
     Route: 065
  2. AMOXICILLIN/CLAVUNALIC ACID (MANUFACTURER UNKNOWN) [Suspect]
     Active Substance: AMOXICILLIN\CLAVULANIC ACID
     Indication: ABDOMINAL WALL HAEMATOMA
     Dosage: 7-DAYS COURSE
     Route: 065
  3. FLUOROURACIL. [Concomitant]
     Active Substance: FLUOROURACIL
     Indication: PRODUCT USED FOR UNKNOWN INDICATION
     Route: 065
  4. OXALIPLATIN (MANUFACTURER UNKNOWN) [Suspect]
     Active Substance: OXALIPLATIN
     Indication: ADENOCARCINOMA OF COLON
     Dosage: 19 MONTHS BEFORE
     Route: 065

REACTIONS (3)
  - Drug-induced liver injury [Recovered/Resolved]
  - Portal hypertension [Recovered/Resolved]
  - Splenomegaly [Recovered/Resolved]
